FAERS Safety Report 6327436-6 (Version None)
Quarter: 2009Q3

REPORT INFORMATION
  Report Type: 
  Country: None (occurrence: None)
  Receive Date: 20090818
  Receipt Date: 20090710
  Transmission Date: 20100115
  Serious: No
  Sender: FDA-Public Use
  Company Number: WAES 0907USA01515

PATIENT
  Sex: Female

DRUGS (2)
  1. JANUVIA [Suspect]
     Indication: TYPE 2 DIABETES MELLITUS
  2. AMARYL [Concomitant]

REACTIONS (2)
  - INFLUENZA LIKE ILLNESS [None]
  - NAUSEA [None]
